FAERS Safety Report 19824758 (Version 1)
Quarter: 2021Q3

REPORT INFORMATION
  Report Type: Spontaneous
  Country: US (occurrence: US)
  Receive Date: 20210913
  Receipt Date: 20210913
  Transmission Date: 20211014
  Serious: Yes (Hospitalization, Disabling)
  Sender: FDA-Public Use
  Company Number: None

PATIENT
  Age: 27 Year
  Sex: Female
  Weight: 76.5 kg

DRUGS (5)
  1. VITAMIN C [Concomitant]
     Active Substance: ASCORBIC ACID
  2. VITAMIN D [Concomitant]
     Active Substance: VITAMIN D NOS
  3. TRETINOIN. [Concomitant]
     Active Substance: TRETINOIN
  4. SPIRONOLACTONE. [Suspect]
     Active Substance: SPIRONOLACTONE
     Indication: ACNE
     Dates: start: 20210330, end: 20210429
  5. COLLAGEN [Concomitant]
     Active Substance: COLLAGEN

REACTIONS (6)
  - Visual field defect [None]
  - Irritable bowel syndrome [None]
  - Nausea [None]
  - Dizziness [None]
  - Gastrointestinal bacterial overgrowth [None]
  - Constipation [None]

NARRATIVE: CASE EVENT DATE: 20210429
